FAERS Safety Report 8735096 (Version 2)
Quarter: 2012Q4

REPORT INFORMATION
  Report Type: 
  Country: US (occurrence: US)
  Receive Date: 20120821
  Receipt Date: 20121105
  Transmission Date: 20130627
  Serious: Yes (Other)
  Sender: FDA-Public Use
  Company Number: PHHY2012US070391

PATIENT
  Age: 61 Year
  Sex: Female

DRUGS (4)
  1. BUFFERIN EXTRA STRENGTH [Suspect]
     Indication: OROPHARYNGEAL PAIN
  2. LOSARTAN HCT [Concomitant]
     Indication: HYPERTENSION
  3. ECHINACEA [Concomitant]
     Indication: OROPHARYNGEAL PAIN
  4. ZINC [Concomitant]
     Indication: OROPHARYNGEAL PAIN

REACTIONS (8)
  - Diabetes mellitus [Not Recovered/Not Resolved]
  - Lower limb fracture [Recovered/Resolved]
  - Wrist fracture [Recovered/Resolved]
  - Ligament rupture [Recovered/Resolved]
  - Head injury [Recovered/Resolved]
  - Fall [Recovered/Resolved]
  - Nasopharyngitis [Unknown]
  - Incorrect dose administered [Unknown]
